FAERS Safety Report 5597903-1 (Version None)
Quarter: 2007Q4

REPORT INFORMATION
  Report Type: 
  Country: None (occurrence: None)
  Receive Date: 20071221
  Receipt Date: 20071003
  Transmission Date: 20080405
  Serious: Yes (Other)
  Sender: FDA-Public Use
  Company Number: PHEH2007US13161

PATIENT
  Age: 10 Year
  Sex: Female

DRUGS (1)
  1. FOCALIN XR [Suspect]
     Dosage: 20 MG IN AM AND 5 MG AT NOON ; 20 MG IN AM AND 10 MG AT NOON
     Dates: start: 20051101

REACTIONS (1)
  - CONVULSION [None]
